FAERS Safety Report 16340533 (Version 1)
Quarter: 2019Q2

REPORT INFORMATION
  Report Type: Spontaneous
  Country: CZ (occurrence: CZ)
  Receive Date: 20190522
  Receipt Date: 20190522
  Transmission Date: 20190711
  Serious: Yes (Hospitalization, Other)
  Sender: FDA-Public Use
  Company Number: CZ-AUROBINDO-AUR-APL-2019-026618

PATIENT

DRUGS (21)
  1. CITALOPRAM [Suspect]
     Active Substance: CITALOPRAM HYDROBROMIDE
     Indication: DEPRESSION
     Dosage: 10 MILLIGRAM, ONCE A DAY
     Route: 048
     Dates: start: 201709
  2. TRIPLIXAM [Suspect]
     Active Substance: AMLODIPINE BESYLATE\INDAPAMIDE\PERINDOPRIL ARGININE
     Indication: PRODUCT USED FOR UNKNOWN INDICATION
     Dosage: 10 MILLIGRAM
     Route: 065
  3. TRIPLIXAM [Suspect]
     Active Substance: AMLODIPINE BESYLATE\INDAPAMIDE\PERINDOPRIL ARGININE
     Dosage: 2.5 MILLIGRAM
     Route: 065
  4. HYDROCHLOROTHIAZIDE. [Suspect]
     Active Substance: HYDROCHLOROTHIAZIDE
     Indication: HYPERTENSION
     Dosage: 0.5 DOSAGE FORM, DAILY
     Route: 048
     Dates: start: 2011
  5. OXYCODONE HYDROCHLORIDE. [Suspect]
     Active Substance: OXYCODONE HYDROCHLORIDE
     Indication: PRODUCT USED FOR UNKNOWN INDICATION
     Dosage: 60 MILLIGRAM
     Route: 048
     Dates: start: 201711
  6. GODASAL [Concomitant]
     Active Substance: ASPIRIN\GLYCINE
     Indication: PRODUCT USED FOR UNKNOWN INDICATION
     Dosage: 100 MILLIGRAM, ONCE A DAY
     Route: 065
  7. CALCICHEW D3 [Concomitant]
     Active Substance: CALCIUM\CHOLECALCIFEROL
     Indication: PRODUCT USED FOR UNKNOWN INDICATION
     Dosage: 1 DOSAGE FORM, ONCE A DAY
     Route: 065
     Dates: start: 20171127
  8. WARFARIN [Concomitant]
     Active Substance: WARFARIN
     Indication: PERIPHERAL ARTERY THROMBOSIS
     Dosage: UNK
     Route: 065
     Dates: start: 1996
  9. TRITACE [Suspect]
     Active Substance: RAMIPRIL
     Indication: HYPERTENSION
     Dosage: 1 DOSAGE FORM, ONCE A DAY
     Route: 065
  10. VASOCARDIN [Suspect]
     Active Substance: METOPROLOL
     Indication: PRODUCT USED FOR UNKNOWN INDICATION
     Dosage: 0.5 MILLIGRAM, ONCE A DAY
     Route: 065
     Dates: start: 2011
  11. NADROPARIN [Suspect]
     Active Substance: NADROPARIN
     Indication: PRODUCT USED FOR UNKNOWN INDICATION
     Dosage: UNK
     Route: 065
  12. OXYCONTIN [Concomitant]
     Active Substance: OXYCODONE HYDROCHLORIDE
     Indication: PRODUCT USED FOR UNKNOWN INDICATION
     Dosage: 0.5 DOSAGE FORM, TWO TIMES A DAY
     Route: 065
  13. WARFARIN [Concomitant]
     Active Substance: WARFARIN
     Indication: PULMONARY EMBOLISM
  14. TENAXUM [Suspect]
     Active Substance: RILMENIDINE
     Indication: PRODUCT USED FOR UNKNOWN INDICATION
     Dosage: 1 DOSAGE FORM, TWO TIMES A DAY
     Route: 065
  15. TRIPLIXAM [Suspect]
     Active Substance: AMLODIPINE BESYLATE\INDAPAMIDE\PERINDOPRIL ARGININE
     Dosage: 5 MILLIGRAM
     Route: 048
     Dates: start: 201711
  16. TONARSSA [Suspect]
     Active Substance: AMLODIPINE BESYLATE\PERINDOPRIL ERBUMINE
     Indication: PRODUCT USED FOR UNKNOWN INDICATION
     Dosage: 5 MILLIGRAM, ONCE A DAY
     Route: 065
     Dates: start: 2015
  17. RILMENIDINE [Concomitant]
     Active Substance: RILMENIDINE
     Indication: PRODUCT USED FOR UNKNOWN INDICATION
     Dosage: UNK
     Route: 065
  18. RAMIPRIL. [Suspect]
     Active Substance: RAMIPRIL
     Indication: HYPERTENSION
     Dosage: 10 MILLIGRAM, ONCE A DAY
     Route: 065
  19. NOLPAZA [Concomitant]
     Active Substance: PANTOPRAZOLE SODIUM
     Indication: PRODUCT USED FOR UNKNOWN INDICATION
     Dosage: 20 MILLIGRAM, ONCE A DAY
     Route: 065
  20. ITOPRIDE [Concomitant]
     Active Substance: ITOPRIDE
     Indication: PRODUCT USED FOR UNKNOWN INDICATION
     Dosage: 1 DOSAGE FORM, TWO TIMES A DAY
     Route: 065
  21. APO-PANTOPRAZOLE [Concomitant]
     Active Substance: PANTOPRAZOLE SODIUM
     Indication: PRODUCT USED FOR UNKNOWN INDICATION
     Dosage: 40 MILLIGRAM, ONCE A DAY
     Route: 065

REACTIONS (3)
  - Hyponatraemia [Recovering/Resolving]
  - Hypotension [Unknown]
  - Hypertension [Recovering/Resolving]
